FAERS Safety Report 8698688 (Version 2)
Quarter: 2013Q4

REPORT INFORMATION
  Report Type: Spontaneous
  Country: US (occurrence: US)
  Receive Date: 20120802
  Receipt Date: 20131101
  Transmission Date: 20140711
  Serious: No
  Sender: FDA-Public Use
  Company Number: US-009507513-1207USA011446

PATIENT
  Sex: 0

DRUGS (2)
  1. SAPHRIS [Suspect]
     Indication: SCHIZOPHRENIA
     Dosage: 10 MG, BID
     Route: 060
  2. SAPHRIS [Suspect]
     Indication: BIPOLAR I DISORDER
     Dosage: 5 MG, BID
     Route: 060

REACTIONS (4)
  - Myalgia [Recovering/Resolving]
  - Tremor [Recovering/Resolving]
  - Akathisia [Recovering/Resolving]
  - Extrapyramidal disorder [Recovering/Resolving]
